FAERS Safety Report 8974081 (Version 1)
Quarter: 2012Q4

REPORT INFORMATION
  Report Type: Spontaneous
  Country: US (occurrence: None)
  Receive Date: 20121217
  Receipt Date: 20121217
  Transmission Date: 20130627
  Serious: Yes (Life-Threatening, Hospitalization)
  Sender: FDA-Public Use
  Company Number: None

PATIENT
  Age: 36 Year
  Sex: Female
  Weight: 104.33 kg

DRUGS (1)
  1. AMETHIA [Suspect]
     Indication: CONTRACEPTION
     Dosage: 1 tablet by mouth daily po
     Route: 048
     Dates: start: 20100629, end: 20121203

REACTIONS (1)
  - Pulmonary embolism [None]
